FAERS Safety Report 5227794-X (Version None)
Quarter: 2007Q1

REPORT INFORMATION
  Report Type: 
  Country: None (occurrence: None)
  Receive Date: 20070202
  Receipt Date: 20070124
  Transmission Date: 20070707
  Serious: Yes (Other)
  Sender: FDA-Public Use
  Company Number: GB-PFIZER INC-2007007239

PATIENT

DRUGS (1)
  1. EPANUTIN SUSPENSION [Suspect]

REACTIONS (1)
  - SICK SINUS SYNDROME [None]
